FAERS Safety Report 20404963 (Version 3)
Quarter: 2022Q1

REPORT INFORMATION
  Report Type: Spontaneous
  Country: US (occurrence: US)
  Receive Date: 20220131
  Receipt Date: 20220214
  Transmission Date: 20220423
  Serious: Yes (Other)
  Sender: FDA-Public Use
  Company Number: US-NOVARTISPH-NVSC2022US018810

PATIENT
  Age: 67 Year
  Sex: Female
  Weight: 84.822 kg

DRUGS (3)
  1. TABRECTA [Suspect]
     Active Substance: CAPMATINIB
     Indication: Non-small cell lung cancer metastatic
     Dosage: 400 MG, BID (DOSED DOWN TO 200)
     Route: 048
     Dates: start: 20210522
  2. TABRECTA [Suspect]
     Active Substance: CAPMATINIB
     Dosage: 200 MG, BID
     Route: 065
     Dates: start: 20210530, end: 20210620
  3. TABRECTA [Suspect]
     Active Substance: CAPMATINIB
     Dosage: 200 MG, BID
     Route: 048
     Dates: start: 20220107, end: 20220125

REACTIONS (4)
  - Peripheral swelling [Recovered/Resolved]
  - Rash [Recovered/Resolved]
  - Renal impairment [Recovered/Resolved]
  - Blood creatinine increased [Unknown]

NARRATIVE: CASE EVENT DATE: 20210602
